FAERS Safety Report 17550312 (Version 2)
Quarter: 2020Q2

REPORT INFORMATION
  Report Type: Spontaneous
  Country: US (occurrence: US)
  Receive Date: 20200317
  Receipt Date: 20200625
  Transmission Date: 20200713
  Serious: Yes (Other)
  Sender: FDA-Public Use
  Company Number: US-PFIZER INC-2020113759

PATIENT
  Age: 73 Year
  Sex: Female
  Weight: 39.91 kg

DRUGS (3)
  1. ALPRAZOLAM ACTAVIS [Suspect]
     Active Substance: ALPRAZOLAM
     Dosage: 1 MG, 2X/DAY [1 TABLET BY MOUTH TWICE DAILY FOR 5 DAYS]
     Route: 048
  2. ALPRAZOLAM ACTAVIS [Suspect]
     Active Substance: ALPRAZOLAM
     Dosage: 1 MG, 1X/DAY [1 TABLET AT BEDTIME FOR 10 DAYS]
     Route: 048
  3. ALPRAZOLAM ACTAVIS [Suspect]
     Active Substance: ALPRAZOLAM
     Dosage: UNK [1/2 TABLET FOR 10 DAYS]
     Route: 048

REACTIONS (2)
  - Drug ineffective [Unknown]
  - Loss of consciousness [Recovered/Resolved]
